FAERS Safety Report 16556221 (Version 4)
Quarter: 2020Q1

REPORT INFORMATION
  Report Type: Report from Study
  Country: None (occurrence: HU)
  Receive Date: 20190710
  Receipt Date: 20200108
  Transmission Date: 20200409
  Serious: No
  Sender: FDA-Public Use
  Company Number: HU-ABBVIE-19P-076-2846722-00

PATIENT
  Age: 82 Year
  Sex: Male

DRUGS (9)
  1. DUODOPA [Suspect]
     Active Substance: CARBIDOPA\LEVODOPA
     Route: 050
     Dates: start: 20170312, end: 20170505
  2. DUODOPA [Suspect]
     Active Substance: CARBIDOPA\LEVODOPA
     Indication: PARKINSON^S DISEASE
     Dosage: TITRATION: MD:10ML; CD: 2.9ML/H; ED: 1ML
     Route: 050
     Dates: start: 20170311, end: 20170312
  3. DUODOPA [Suspect]
     Active Substance: CARBIDOPA\LEVODOPA
     Route: 050
     Dates: start: 20170505
  4. MADOPAR [Concomitant]
     Active Substance: BENSERAZIDE HYDROCHLORIDE\LEVODOPA
     Indication: PARKINSON^S DISEASE
     Dosage: DOSE: 200/50 MG
     Route: 048
     Dates: start: 1996, end: 20170507
  5. PK-MERZ [Concomitant]
     Active Substance: AMANTADINE
     Indication: PARKINSON^S DISEASE
     Dosage: FREQUENCY SPECIFY (1-0-1/2)
     Route: 048
     Dates: start: 2015, end: 20170507
  6. REQUIP [Concomitant]
     Active Substance: ROPINIROLE HYDROCHLORIDE
     Indication: PARKINSON^S DISEASE
     Dosage: FREQUENCY SPECIFY (4-0-1)
     Route: 048
     Dates: start: 1996
  7. STALEVO [Concomitant]
     Active Substance: CARBIDOPA\ENTACAPONE\LEVODOPA
     Indication: PARKINSON^S DISEASE
     Dosage: DOSE: 150/37.5/200 MG
     Route: 048
     Dates: start: 2007, end: 20170506
  8. TANYZ ERAS [Concomitant]
     Indication: PROSTATE CANCER
     Route: 048
     Dates: start: 201604
  9. ELIGARD [Concomitant]
     Active Substance: LEUPROLIDE ACETATE
     Indication: PROSTATE CANCER
     Route: 058
     Dates: start: 201512

REACTIONS (1)
  - Syncope [Recovered/Resolved]

NARRATIVE: CASE EVENT DATE: 20190326
